FAERS Safety Report 20629884 (Version 1)
Quarter: 2022Q1

REPORT INFORMATION
  Report Type: Spontaneous
  Country: IR (occurrence: IR)
  Receive Date: 20220324
  Receipt Date: 20220324
  Transmission Date: 20220424
  Serious: Yes (Other)
  Sender: FDA-Public Use
  Company Number: IR-ABBVIE-22K-080-4329044-00

PATIENT
  Age: 43 Year
  Sex: Female
  Weight: 66 kg

DRUGS (2)
  1. VALPROATE SODIUM [Suspect]
     Active Substance: VALPROATE SODIUM
     Indication: Product used for unknown indication
     Route: 065
  2. VALPROATE SODIUM [Suspect]
     Active Substance: VALPROATE SODIUM
     Route: 065

REACTIONS (4)
  - Loss of personal independence in daily activities [Recovering/Resolving]
  - Seizure [Recovering/Resolving]
  - Insomnia [Recovering/Resolving]
  - Drug ineffective [Unknown]
